FAERS Safety Report 8300989-4 (Version None)
Quarter: 2012Q2

REPORT INFORMATION
  Report Type: 
  Country: None (occurrence: None)
  Receive Date: 20120420
  Receipt Date: 20120412
  Transmission Date: 20120825
  Serious: Yes (Other)
  Sender: FDA-Public Use
  Company Number: FR-JNJFOC-20120405878

PATIENT
  Sex: Female

DRUGS (11)
  1. MORPHINE SULFATE [Suspect]
     Route: 048
     Dates: start: 20120210
  2. DURAGESIC-100 [Suspect]
     Indication: NEOPLASM
     Route: 062
     Dates: start: 20120203, end: 20120211
  3. PRIMPERAN TAB [Interacting]
     Indication: PRODUCT USED FOR UNKNOWN INDICATION
     Route: 048
     Dates: start: 20120127, end: 20120209
  4. MORPHINE SULFATE [Suspect]
     Indication: PRODUCT USED FOR UNKNOWN INDICATION
     Route: 048
  5. DURAGESIC-100 [Suspect]
     Route: 062
  6. MORPHINE SULFATE [Suspect]
     Route: 048
  7. NEXIUM [Concomitant]
     Route: 065
  8. MORPHINE SULFATE [Suspect]
     Route: 048
     Dates: start: 20120211
  9. ANAFRANIL [Concomitant]
     Route: 065
  10. MORPHINE SULFATE [Suspect]
     Route: 048
     Dates: start: 20120209
  11. OXYCODONE HCL [Suspect]
     Indication: PRODUCT USED FOR UNKNOWN INDICATION
     Route: 048
     Dates: start: 20120209, end: 20120211

REACTIONS (5)
  - OVERDOSE [None]
  - SOMNOLENCE [None]
  - DRUG INTERACTION [None]
  - BRADYPNOEA [None]
  - MYOCLONUS [None]
